FAERS Safety Report 10195088 (Version 3)
Quarter: 2014Q3

REPORT INFORMATION
  Report Type: Spontaneous
  Country: JP (occurrence: JP)
  Receive Date: 20140526
  Receipt Date: 20140926
  Transmission Date: 20150326
  Serious: Yes (Hospitalization, Other)
  Sender: FDA-Public Use
  Company Number: JP-MERCK-1405JPN010476

PATIENT
  Age: 72 Year
  Sex: Male

DRUGS (9)
  1. GLACTIV [Suspect]
     Active Substance: SITAGLIPTIN
     Dosage: 25 MG, QD
     Route: 048
     Dates: start: 20131005, end: 20140516
  2. SEIBULE [Suspect]
     Active Substance: MIGLITOL
     Dosage: 75 MG, TID
     Route: 048
     Dates: start: 20140424, end: 20140516
  3. GLACTIV [Suspect]
     Active Substance: SITAGLIPTIN
     Indication: TYPE 2 DIABETES MELLITUS
     Dosage: 50 MG ONCE A DAY
     Route: 048
     Dates: start: 20100724, end: 20111011
  4. SEIBULE [Suspect]
     Active Substance: MIGLITOL
     Dosage: 50 MG, TID
     Route: 048
     Dates: start: 20111115, end: 20120410
  5. AMARYL [Concomitant]
     Active Substance: GLIMEPIRIDE
     Dosage: 0.5 MG, QD
     Dates: start: 20100820, end: 20100820
  6. SEIBULE [Suspect]
     Active Substance: MIGLITOL
     Dosage: 75 MG, TID
     Route: 048
     Dates: start: 20120411, end: 20140304
  7. GLACTIV [Suspect]
     Active Substance: SITAGLIPTIN
     Dosage: 25 MG, QD
     Route: 048
     Dates: start: 20111012, end: 20111114
  8. GLACTIV [Suspect]
     Active Substance: SITAGLIPTIN
     Dosage: 50 MG, QD
     Route: 048
     Dates: start: 20111115, end: 20131004
  9. ACTOS [Concomitant]
     Active Substance: PIOGLITAZONE HYDROCHLORIDE
     Dosage: 15 MG
     Dates: start: 20080228, end: 20100916

REACTIONS (2)
  - Stevens-Johnson syndrome [Recovered/Resolved]
  - Eczema [Recovered/Resolved]

NARRATIVE: CASE EVENT DATE: 20140513
